FAERS Safety Report 10339548 (Version 1)
Quarter: 2014Q3

REPORT INFORMATION
  Report Type: Spontaneous
  Country: US (occurrence: None)
  Receive Date: 20140723
  Receipt Date: 20140723
  Transmission Date: 20150326
  Serious: Yes (Other)
  Sender: FDA-Public Use
  Company Number: None

PATIENT
  Age: 30 Year
  Sex: Female

DRUGS (1)
  1. LUPRON DEPOT [Suspect]
     Active Substance: LEUPROLIDE ACETATE
     Route: 030
     Dates: start: 201405

REACTIONS (4)
  - Depression [None]
  - Feeling abnormal [None]
  - Social avoidant behaviour [None]
  - Confusional state [None]

NARRATIVE: CASE EVENT DATE: 20140601
